FAERS Safety Report 20965640 (Version 1)
Quarter: 2022Q2

REPORT INFORMATION
  Report Type: Spontaneous
  Country: US (occurrence: US)
  Receive Date: 20220616
  Receipt Date: 20220616
  Transmission Date: 20220721
  Serious: No
  Sender: FDA-Public Use
  Company Number: US-TEVA-2022-US-2040924

PATIENT
  Sex: Female

DRUGS (2)
  1. AIRDUO DIGIHALER [Suspect]
     Active Substance: FLUTICASONE PROPIONATE\SALMETEROL XINAFOATE
     Dosage: FLUTICASONE 113 MCG/SALMETEROL 14 MCG
     Route: 065
  2. AIRDUO DIGIHALER [Suspect]
     Active Substance: FLUTICASONE PROPIONATE\SALMETEROL XINAFOATE

REACTIONS (2)
  - Device occlusion [Unknown]
  - Cough [Unknown]
